FAERS Safety Report 5825820-8 (Version None)
Quarter: 2008Q3

REPORT INFORMATION
  Report Type: 
  Country: None (occurrence: None)
  Receive Date: 20080729
  Receipt Date: 20080722
  Transmission Date: 20090109
  Serious: Yes (Hospitalization)
  Sender: FDA-Public Use
  Company Number: FR-AVENTIS-200812782FR

PATIENT
  Age: 59 Year
  Sex: Female

DRUGS (11)
  1. LANTUS [Suspect]
     Route: 058
     Dates: start: 20080527, end: 20080530
  2. PRIMPERAN                          /00041901/ [Suspect]
     Route: 048
     Dates: start: 20080531, end: 20080531
  3. BYETTA [Suspect]
     Route: 058
     Dates: start: 20080530, end: 20080601
  4. SIMVASTATINE TEVA [Suspect]
     Route: 048
     Dates: end: 20080602
  5. MOTILIUM [Suspect]
     Route: 048
     Dates: start: 20080530, end: 20080605
  6. AMLOR [Suspect]
     Route: 048
     Dates: start: 20080529, end: 20080602
  7. SPASFON                            /00934601/ [Suspect]
     Route: 048
     Dates: start: 20080529, end: 20080603
  8. KARDEGIC                           /00002703/ [Concomitant]
     Route: 048
  9. TARDYFERON                         /00023503/ [Concomitant]
     Route: 048
  10. MOPRAL [Concomitant]
     Route: 048
  11. UMULINE                            /00646003/ [Concomitant]
     Route: 058

REACTIONS (2)
  - HYPOAESTHESIA [None]
  - PARAESTHESIA [None]
